FAERS Safety Report 4939217-6 (Version None)
Quarter: 2006Q1

REPORT INFORMATION
  Report Type: 
  Country: None (occurrence: None)
  Receive Date: 20060310
  Receipt Date: 20060127
  Transmission Date: 20060701
  Serious: Yes (Other)
  Sender: FDA-Public Use
  Company Number: PHBS2006DE01749

PATIENT
  Age: 52 Year
  Sex: Female

DRUGS (2)
  1. PENICILLIN [Suspect]
     Indication: NASOPHARYNGITIS
  2. DICLOFENAC EPOLAMINE PATCH [Suspect]
     Indication: ARTHRALGIA

REACTIONS (19)
  - ACUTE GENERALISED EXANTHEMATOUS PUSTULOSIS [None]
  - ALANINE AMINOTRANSFERASE INCREASED [None]
  - ASPARTATE AMINOTRANSFERASE INCREASED [None]
  - BACTERIAL INFECTION [None]
  - BODY TEMPERATURE INCREASED [None]
  - C-REACTIVE PROTEIN INCREASED [None]
  - DERMATITIS CONTACT [None]
  - ERYSIPELAS [None]
  - ERYTHEMA [None]
  - GAMMA-GLUTAMYLTRANSFERASE INCREASED [None]
  - HEAT RASH [None]
  - HERPES ZOSTER [None]
  - LEUKOCYTOSIS [None]
  - MALAISE [None]
  - SKIN EXFOLIATION [None]
  - STREPTOCOCCAL SEROLOGY POSITIVE [None]
  - SWELLING FACE [None]
  - TRANSAMINASES INCREASED [None]
  - TRICHOPHYTON INFECTION [None]
